FAERS Safety Report 17705958 (Version 1)
Quarter: 2020Q2

REPORT INFORMATION
  Report Type: Spontaneous
  Country: US (occurrence: US)
  Receive Date: 20200424
  Receipt Date: 20200424
  Transmission Date: 20200714
  Serious: Yes (Hospitalization, Other)
  Sender: FDA-Public Use
  Company Number: US-MYLANLABS-2020M1040803

PATIENT
  Age: 17 Year
  Sex: Female

DRUGS (2)
  1. TESTOSTERONE. [Suspect]
     Active Substance: TESTOSTERONE
     Indication: GENDER DYSPHORIA
     Route: 065
  2. NORETHINDRONE ACETATE. [Concomitant]
     Active Substance: NORETHINDRONE ACETATE
     Indication: DRUG THERAPY
     Dosage: UNK
     Route: 065

REACTIONS (2)
  - Borderline serous tumour of ovary [Recovered/Resolved]
  - Adnexal torsion [Recovered/Resolved]
